FAERS Safety Report 17482552 (Version 3)
Quarter: 2020Q2

REPORT INFORMATION
  Report Type: Spontaneous
  Country: FR (occurrence: FR)
  Receive Date: 20200302
  Receipt Date: 20200608
  Transmission Date: 20200713
  Serious: Yes (Hospitalization, Other)
  Sender: FDA-Public Use
  Company Number: FR-PFIZER INC-2020085712

PATIENT
  Age: 52 Year
  Sex: Female
  Weight: 91 kg

DRUGS (3)
  1. DOCETAXEL. [Suspect]
     Active Substance: DOCETAXEL
     Indication: BREAST CANCER FEMALE
     Dosage: 187 MG, CYCLIC (1 CYCLE)
     Route: 041
     Dates: start: 20200109, end: 20200109
  2. METHYLPREDNISOLONE. [Concomitant]
     Active Substance: METHYLPREDNISOLONE
     Dosage: 120 MG, 1X/DAY
     Route: 051
     Dates: start: 20200109, end: 20200109
  3. ZARZIO [Concomitant]
     Active Substance: FILGRASTIM
     Dosage: UNK
     Route: 051
     Dates: start: 20200112, end: 20200112

REACTIONS (7)
  - Neutropenia [Recovered/Resolved]
  - Arthralgia [Recovered/Resolved]
  - Leukopenia [Recovered/Resolved]
  - Lymphopenia [Recovering/Resolving]
  - Mucosal inflammation [Recovered/Resolved]
  - Vulvitis [Recovered/Resolved]
  - Monocytopenia [Recovered/Resolved]

NARRATIVE: CASE EVENT DATE: 20200114
